FAERS Safety Report 8446675-1 (Version None)
Quarter: 2012Q2

REPORT INFORMATION
  Report Type: 
  Country: None (occurrence: None)
  Receive Date: 20120619
  Receipt Date: 20120607
  Transmission Date: 20120825
  Serious: No
  Sender: FDA-Public Use
  Company Number: US-BIOGENIDEC-2012BI020257

PATIENT
  Sex: Female

DRUGS (1)
  1. TYSABRI [Suspect]
     Indication: MULTIPLE SCLEROSIS
     Route: 042
     Dates: start: 20101026, end: 20111007

REACTIONS (5)
  - RELAPSING-REMITTING MULTIPLE SCLEROSIS [None]
  - PROCEDURAL PAIN [None]
  - SLEEP APNOEA SYNDROME [None]
  - CONFUSIONAL STATE [None]
  - INSOMNIA [None]
